FAERS Safety Report 25046474 (Version 1)
Quarter: 2025Q1

REPORT INFORMATION
  Report Type: Spontaneous
  Country: CN (occurrence: CN)
  Receive Date: 20250306
  Receipt Date: 20250306
  Transmission Date: 20250408
  Serious: Yes (Life-Threatening)
  Sender: NOVARTIS
  Company Number: CN-002147023-NVSC2025CN038190

PATIENT
  Age: 72 Year
  Sex: Female
  Weight: 52 kg

DRUGS (14)
  1. SACUBITRIL\VALSARTAN [Suspect]
     Active Substance: SACUBITRIL\VALSARTAN
     Indication: Hypertension
     Dosage: 50 MG, BID
     Route: 048
     Dates: start: 202404
  2. SACUBITRIL\VALSARTAN [Suspect]
     Active Substance: SACUBITRIL\VALSARTAN
     Dosage: 50.000 MG, BID
     Route: 048
     Dates: start: 20250201, end: 20250226
  3. FUROSEMIDE [Suspect]
     Active Substance: FUROSEMIDE
     Indication: Hypertension
     Dosage: 20 MG, QD
     Route: 048
     Dates: start: 202404
  4. FUROSEMIDE [Suspect]
     Active Substance: FUROSEMIDE
     Indication: Diuretic therapy
     Dosage: 40.000 MG, QD
     Route: 048
     Dates: start: 20250201, end: 20250226
  5. SPIRONOLACTONE [Suspect]
     Active Substance: SPIRONOLACTONE
     Indication: Hypertension
     Dosage: 20 MG, QD
     Route: 048
     Dates: start: 202404
  6. SPIRONOLACTONE [Suspect]
     Active Substance: SPIRONOLACTONE
     Indication: Diuretic therapy
     Dosage: 40.000 MG, QD
     Route: 048
     Dates: start: 20250201, end: 20250226
  7. TERAZOSIN HYDROCHLORIDE [Concomitant]
     Active Substance: TERAZOSIN HYDROCHLORIDE
     Indication: Hypertension
     Dosage: 2 MG, QD
     Route: 048
     Dates: start: 202404
  8. ATORVASTATIN CALCIUM [Concomitant]
     Active Substance: ATORVASTATIN CALCIUM
     Indication: Symptomatic treatment
     Dosage: 20 MG, QD
     Route: 048
     Dates: start: 202404
  9. CLOPIDOGREL BISULFATE [Concomitant]
     Active Substance: CLOPIDOGREL BISULFATE
     Indication: Platelet aggregation abnormal
     Route: 065
     Dates: start: 202404
  10. INDOBUFEN [Concomitant]
     Active Substance: INDOBUFEN
     Indication: Platelet aggregation abnormal
     Route: 065
     Dates: start: 202404
  11. RABEPRAZOLE SODIUM [Concomitant]
     Active Substance: RABEPRAZOLE SODIUM
     Indication: Symptomatic treatment
     Route: 065
     Dates: start: 202404
  12. ACARBOSE [Concomitant]
     Active Substance: ACARBOSE
     Indication: Blood glucose increased
     Route: 065
     Dates: start: 202404
  13. REPAGLINIDE [Concomitant]
     Active Substance: REPAGLINIDE
     Indication: Blood glucose increased
     Route: 065
     Dates: start: 202404
  14. INSULIN ASPART [Concomitant]
     Active Substance: INSULIN ASPART
     Indication: Blood glucose increased
     Route: 065
     Dates: start: 202404

REACTIONS (3)
  - Hyperkalaemia [Recovering/Resolving]
  - Hyponatraemia [Recovering/Resolving]
  - Hypochloraemia [Recovering/Resolving]

NARRATIVE: CASE EVENT DATE: 20250226
